FAERS Safety Report 14893891 (Version 3)
Quarter: 2018Q2

REPORT INFORMATION
  Report Type: Report from Study
  Country: US (occurrence: US)
  Receive Date: 20180514
  Receipt Date: 20180606
  Transmission Date: 20180711
  Serious: Yes (Death, Hospitalization, Other)
  Sender: FDA-Public Use
  Company Number: US-ACTELION-A-NJ2018-172016

PATIENT
  Age: 68 Year
  Sex: Male
  Weight: 73.47 kg

DRUGS (2)
  1. OPSUMIT [Suspect]
     Active Substance: MACITENTAN
     Indication: PULMONARY HYPERTENSION
     Dosage: 10 MG, QD
     Route: 048
  2. SILDENAFIL CITRATE. [Concomitant]
     Active Substance: SILDENAFIL CITRATE
     Dosage: 20 MG, TID

REACTIONS (11)
  - Lung adenocarcinoma [Unknown]
  - Lung disorder [Fatal]
  - Asthenia [Unknown]
  - Blood pressure abnormal [Unknown]
  - Respiratory failure [Fatal]
  - Renal replacement therapy [Unknown]
  - Pericardial effusion [Unknown]
  - Acute kidney injury [Unknown]
  - Haemoptysis [Unknown]
  - Dyspnoea [Fatal]
  - Fluid overload [Unknown]
